FAERS Safety Report 8563591-5 (Version None)
Quarter: 2012Q3

REPORT INFORMATION
  Report Type: 
  Country: None (occurrence: None)
  Receive Date: 20120803
  Receipt Date: 20120726
  Transmission Date: 20120928
  Serious: Yes (Other)
  Sender: FDA-Public Use
  Company Number: US-009507513-2012SP023453

PATIENT

DRUGS (4)
  1. REBETOL [Suspect]
     Dosage: 600 MG, BID
     Route: 048
  2. VICTRELIS [Suspect]
     Indication: PRODUCT USED FOR UNKNOWN INDICATION
     Dosage: 800 MG, TID
  3. PEG-INTRON [Suspect]
     Indication: PRODUCT USED FOR UNKNOWN INDICATION
     Dosage: 150 MICROGRAM, QW
     Route: 058
  4. CHLORDIAZEPOXIDE HYDROCHLORIDE [Concomitant]

REACTIONS (7)
  - ERECTILE DYSFUNCTION [None]
  - INJECTION SITE RASH [None]
  - ECZEMA [None]
  - PRODUCT SUBSTITUTION ISSUE [None]
  - ANORECTAL DISORDER [None]
  - PRODUCT QUALITY ISSUE [None]
  - INJECTION SITE PRURITUS [None]
